FAERS Safety Report 17924418 (Version 1)
Quarter: 2020Q2

REPORT INFORMATION
  Report Type: Other
  Country: US (occurrence: US)
  Receive Date: 20200622
  Receipt Date: 20200622
  Transmission Date: 20200714
  Serious: No
  Sender: FDA-Public Use
  Company Number: US-ACORDA-ACO_164431_2020

PATIENT
  Sex: Male

DRUGS (1)
  1. INBRIJA [Suspect]
     Active Substance: LEVODOPA
     Indication: PARKINSON^S DISEASE
     Dosage: 42 MILLIGRAM, PRN, UP TO 5 TIMES A DAY
     Dates: start: 20200215

REACTIONS (2)
  - Ill-defined disorder [Not Recovered/Not Resolved]
  - Heart rate increased [Not Recovered/Not Resolved]
